FAERS Safety Report 5081624-8 (Version None)
Quarter: 2006Q3

REPORT INFORMATION
  Report Type: 
  Country: None (occurrence: None)
  Receive Date: 20060810
  Receipt Date: 20060724
  Transmission Date: 20061208
  Serious: Yes (Other)
  Sender: FDA-Public Use
  Company Number: CA200604002160

PATIENT
  Age: 74 Year
  Sex: Female

DRUGS (6)
  1. TERIPARATIDE (TERIPARATIDE) [Suspect]
     Indication: OSTEOPOROSIS
     Dosage: 20 UG, DAILY (1/D), SUBCUTANEOUS
     Route: 058
     Dates: start: 20050623, end: 20060401
  2. CALCIUM (CALCIUM) [Concomitant]
  3. VITAMIN D [Concomitant]
  4. CYANOCOBALAMIN [Concomitant]
  5. PIROXICAM [Concomitant]
  6. GRAVOL TAB [Concomitant]

REACTIONS (9)
  - DECREASED APPETITE [None]
  - DIARRHOEA [None]
  - HEPATIC HAEMORRHAGE [None]
  - METASTASES TO LIVER [None]
  - METASTATIC NEOPLASM [None]
  - NAUSEA [None]
  - NECROSIS [None]
  - NEUROENDOCRINE CARCINOMA [None]
  - WEIGHT DECREASED [None]
